FAERS Safety Report 7629033-9 (Version None)
Quarter: 2011Q3

REPORT INFORMATION
  Report Type: 
  Country: None (occurrence: None)
  Receive Date: 20110722
  Receipt Date: 20110712
  Transmission Date: 20111222
  Serious: Yes (Death)
  Sender: FDA-Public Use
  Company Number: IT-MILLENNIUM PHARMACEUTICALS, INC.-2011-02940

PATIENT

DRUGS (3)
  1. VELCADE [Suspect]
     Indication: MULTIPLE MYELOMA
     Dosage: 1.7 MG, CYCLIC
     Route: 042
     Dates: start: 20110426, end: 20110506
  2. MELPHALAN HYDROCHLORIDE [Concomitant]
     Indication: MULTIPLE MYELOMA
     Dosage: 15 MG, CYCLIC
     Route: 048
     Dates: start: 20110426, end: 20110429
  3. PREDNISONE [Concomitant]
     Indication: MULTIPLE MYELOMA
     Dosage: 100 MG, CYCLIC
     Route: 048
     Dates: start: 20110426, end: 20110429

REACTIONS (1)
  - SUDDEN DEATH [None]
